FAERS Safety Report 20132980 (Version 1)
Quarter: 2021Q4

REPORT INFORMATION
  Report Type: Spontaneous
  Country: US (occurrence: None)
  Receive Date: 20211201
  Receipt Date: 20211201
  Transmission Date: 20220303
  Serious: No
  Sender: FDA-Public Use
  Company Number: US-Merck Healthcare KGaA-9282766

PATIENT
  Sex: Female

DRUGS (1)
  1. GONAL-F RFF [Suspect]
     Active Substance: FOLLITROPIN
     Indication: Product used for unknown indication

REACTIONS (1)
  - COVID-19 [Unknown]
